FAERS Safety Report 4953037-8 (Version None)
Quarter: 2006Q1

REPORT INFORMATION
  Report Type: 
  Country: None (occurrence: None)
  Receive Date: 20060324
  Receipt Date: 20060314
  Transmission Date: 20060701
  Serious: Yes (Hospitalization)
  Sender: FDA-Public Use
  Company Number: US-ABBOTT-06P-163-0328072-00

PATIENT
  Sex: Female

DRUGS (13)
  1. VICODIN [Suspect]
     Indication: ABDOMINAL PAIN
     Dates: start: 19920101, end: 20040801
  2. VICODIN [Suspect]
     Indication: ABDOMINAL DISTENSION
  3. VICODIN [Suspect]
     Indication: SHOULDER PAIN
  4. VICODIN [Suspect]
     Indication: NECK PAIN
  5. VICODIN [Suspect]
     Indication: BACK PAIN
  6. VICODIN [Suspect]
     Indication: MIGRAINE
  7. VICODIN [Suspect]
     Indication: CHEST PAIN
  8. VICODIN [Suspect]
  9. VICODIN [Suspect]
     Indication: COUGH
  10. ALPRAZOLAM [Concomitant]
     Indication: DRUG USE FOR UNKNOWN INDICATION
     Dates: start: 19910101
  11. ALPRAZOLAM [Concomitant]
  12. DIAZEPAM [Concomitant]
     Indication: DRUG USE FOR UNKNOWN INDICATION
  13. FLUOXETINE HYDROCHLORIDE [Concomitant]
     Indication: DRUG USE FOR UNKNOWN INDICATION
     Dates: start: 19910101, end: 20000101

REACTIONS (17)
  - ABDOMINAL PAIN [None]
  - ARTHRALGIA [None]
  - BACK PAIN [None]
  - BRONCHITIS [None]
  - CHEST PAIN [None]
  - COUGH [None]
  - DEPENDENCE [None]
  - DIARRHOEA [None]
  - DRUG DEPENDENCE [None]
  - DYSPNOEA [None]
  - EXTRAPYRAMIDAL DISORDER [None]
  - HEADACHE [None]
  - NECK PAIN [None]
  - PELVIC PAIN [None]
  - ROAD TRAFFIC ACCIDENT [None]
  - SINUSITIS [None]
  - URTICARIA [None]
